FAERS Safety Report 8112957-6 (Version None)
Quarter: 2012Q1

REPORT INFORMATION
  Report Type: 
  Country: None (occurrence: None)
  Receive Date: 20120203
  Receipt Date: 20120127
  Transmission Date: 20120608
  Serious: Yes (Hospitalization, Other)
  Sender: FDA-Public Use
  Company Number: US-MERCK-1111USA01724

PATIENT
  Age: 88 Year
  Sex: Female
  Weight: 66 kg

DRUGS (4)
  1. FOSAMAX [Suspect]
     Indication: OSTEOPOROSIS
     Route: 048
     Dates: start: 20100101, end: 20110801
  2. ACTONEL [Concomitant]
     Indication: OSTEOPOROSIS
     Route: 065
     Dates: start: 20080617, end: 20100113
  3. SYNTHROID [Concomitant]
     Indication: HYPOTHYROIDISM
     Route: 065
  4. ALENDRONATE SODIUM [Suspect]
     Route: 048
     Dates: start: 20100205, end: 20110901

REACTIONS (19)
  - MACULAR DEGENERATION [None]
  - CAROTID ARTERY DISEASE [None]
  - FEMUR FRACTURE [None]
  - ARRHYTHMIA [None]
  - OSTEOPENIA [None]
  - ANAEMIA [None]
  - JOINT SWELLING [None]
  - DYSPNOEA EXERTIONAL [None]
  - BLADDER DISORDER [None]
  - CARDIAC MURMUR [None]
  - ARTHRALGIA [None]
  - FUNGAL SKIN INFECTION [None]
  - SKIN DISORDER [None]
  - URINARY TRACT INFECTION [None]
  - LEFT VENTRICULAR HYPERTROPHY [None]
  - HAEMARTHROSIS [None]
  - JOINT EFFUSION [None]
  - RENAL CYST [None]
  - DYSLIPIDAEMIA [None]
